FAERS Safety Report 7430749-8 (Version None)
Quarter: 2011Q2

REPORT INFORMATION
  Report Type: 
  Country: None (occurrence: None)
  Receive Date: 20110421
  Receipt Date: 20110414
  Transmission Date: 20111010
  Serious: Yes (Hospitalization)
  Sender: FDA-Public Use
  Company Number: US-US-EMD SERONO, INC.-7053829

PATIENT
  Sex: Male
  Weight: 100 kg

DRUGS (8)
  1. REBIF [Suspect]
     Indication: RELAPSING-REMITTING MULTIPLE SCLEROSIS
     Route: 058
     Dates: start: 20110228, end: 20110311
  2. CELEXA [Concomitant]
     Indication: DEPRESSION
     Route: 048
     Dates: start: 20101116
  3. INDOMETHACIN [Concomitant]
     Indication: HEMICEPHALALGIA
     Route: 048
     Dates: start: 20101121
  4. TIZANIDINE [Concomitant]
     Indication: MUSCLE SPASTICITY
     Route: 048
     Dates: start: 20110216
  5. VENTOLIN [Concomitant]
     Indication: INFLUENZA
     Route: 048
     Dates: start: 20110112
  6. PLACEBO [Suspect]
     Indication: RELAPSING-REMITTING MULTIPLE SCLEROSIS
  7. REBIF [Suspect]
     Route: 058
     Dates: start: 20110314
  8. AMBIEN [Concomitant]
     Indication: INSOMNIA
     Route: 048
     Dates: start: 20110310

REACTIONS (2)
  - VERTIGO [None]
  - ASTHENIA [None]
